FAERS Safety Report 5977454-2 (Version None)
Quarter: 2008Q4

REPORT INFORMATION
  Report Type: 
  Country: None (occurrence: None)
  Receive Date: 20081203
  Receipt Date: 20081201
  Transmission Date: 20090506
  Serious: Yes (Other)
  Sender: FDA-Public Use
  Company Number: B0542996A

PATIENT
  Age: 85 Year
  Sex: Female

DRUGS (7)
  1. PAXIL [Suspect]
     Indication: DEPRESSION
     Dosage: 5MG PER DAY
     Route: 048
     Dates: start: 20081002, end: 20081015
  2. NU-LOTAN [Concomitant]
     Indication: HYPERTENSION
     Dosage: 100MG PER DAY
     Route: 048
  3. NIFELAT L [Concomitant]
     Indication: HYPERTENSION
     Dosage: 40MG PER DAY
     Route: 048
  4. ALOSENN [Concomitant]
     Indication: CONSTIPATION
     Dosage: .5G PER DAY
     Route: 048
  5. SORENTMIN [Concomitant]
     Indication: INSOMNIA
     Dosage: .25MG PER DAY
     Route: 048
  6. DEPAS [Concomitant]
     Indication: DEPRESSION
     Dosage: .5MG PER DAY
     Route: 048
  7. GASMOTIN [Concomitant]
     Indication: DYSPEPSIA
     Dosage: 15MG PER DAY
     Route: 048
     Dates: start: 20081002

REACTIONS (3)
  - HYPONATRAEMIA [None]
  - INAPPROPRIATE ANTIDIURETIC HORMONE SECRETION [None]
  - PYREXIA [None]
